APPROVED DRUG PRODUCT: SENSORCAINE
Active Ingredient: BUPIVACAINE HYDROCHLORIDE; EPINEPHRINE BITARTRATE
Strength: 0.25%;0.0091MG/ML
Dosage Form/Route: INJECTABLE;INJECTION
Application: A070967 | Product #001 | TE Code: AP
Applicant: FRESENIUS KABI USA LLC
Approved: Oct 13, 1987 | RLD: No | RS: No | Type: RX